FAERS Safety Report 7741572-9 (Version None)
Quarter: 2011Q3

REPORT INFORMATION
  Report Type: 
  Country: None (occurrence: None)
  Receive Date: 20110909
  Receipt Date: 20110831
  Transmission Date: 20111222
  Serious: Yes (Hospitalization, Other)
  Sender: FDA-Public Use
  Company Number: US-ASTRAZENECA-2010SE21479

PATIENT
  Age: 67 Year
  Sex: Female
  Weight: 86.2 kg

DRUGS (28)
  1. NEXIUM [Suspect]
     Indication: GASTROOESOPHAGEAL REFLUX DISEASE
     Route: 048
  2. SEROQUEL [Suspect]
     Indication: ANXIETY
     Route: 048
     Dates: start: 20090101, end: 20100601
  3. SEROQUEL [Suspect]
     Route: 048
     Dates: start: 20100601, end: 20100101
  4. SEROQUEL [Suspect]
     Route: 048
  5. CLONAZEPAM [Concomitant]
     Indication: ANXIETY
  6. ROBAXIN [Concomitant]
     Indication: MUSCLE SPASMS
  7. NEXIUM [Suspect]
     Route: 048
  8. SEROQUEL [Suspect]
     Indication: SLEEP DISORDER
     Route: 048
     Dates: start: 20090101, end: 20100601
  9. SEROQUEL [Suspect]
     Route: 048
     Dates: start: 20100601, end: 20100101
  10. SEROQUEL [Suspect]
     Route: 048
     Dates: start: 20100601, end: 20100101
  11. SEROQUEL [Suspect]
     Route: 048
  12. SEROQUEL [Suspect]
     Route: 048
  13. SEROQUEL [Suspect]
     Route: 048
  14. SEROQUEL [Suspect]
     Route: 048
  15. ATIVAN [Concomitant]
     Indication: ANXIETY
     Route: 048
     Dates: start: 19970101
  16. ATIVAN [Concomitant]
     Route: 048
  17. METHOCARBAMOL [Concomitant]
     Indication: PAIN
  18. NEXIUM [Suspect]
     Route: 048
  19. SEROQUEL [Suspect]
     Indication: ANTIDEPRESSANT THERAPY
     Route: 048
     Dates: start: 20090101, end: 20100601
  20. ATIVAN [Concomitant]
     Indication: SLEEP DISORDER
     Route: 048
     Dates: start: 19970101
  21. NEXIUM [Suspect]
     Indication: DYSPEPSIA
     Route: 048
  22. SEROQUEL [Suspect]
     Route: 048
  23. CITALOPRAM HYDROBROMIDE [Concomitant]
     Indication: DEPRESSION
  24. ATIVAN [Concomitant]
     Route: 048
  25. ATIVAN [Concomitant]
     Route: 048
  26. BLOOD PRESSURE MED [Concomitant]
     Indication: HYPERTENSION
  27. HYDROCODONE BITARTRATE [Concomitant]
     Indication: PAIN
  28. ATIVAN [Concomitant]
     Route: 048

REACTIONS (21)
  - POOR QUALITY SLEEP [None]
  - INITIAL INSOMNIA [None]
  - DEPRESSION [None]
  - DRUG INEFFECTIVE [None]
  - FEELING ABNORMAL [None]
  - FEELING JITTERY [None]
  - WRONG TECHNIQUE IN DRUG USAGE PROCESS [None]
  - TREMOR [None]
  - DIZZINESS [None]
  - DYSPHONIA [None]
  - MIDDLE INSOMNIA [None]
  - RENAL FAILURE ACUTE [None]
  - CEREBRAL HAEMORRHAGE [None]
  - TREATMENT NONCOMPLIANCE [None]
  - IRREGULAR SLEEP PHASE [None]
  - ABNORMAL DREAMS [None]
  - NERVOUSNESS [None]
  - FATIGUE [None]
  - INSOMNIA [None]
  - SOMNOLENCE [None]
  - DRUG DOSE OMISSION [None]
